FAERS Safety Report 10685014 (Version 3)
Quarter: 2021Q2

REPORT INFORMATION
  Report Type: Report from Study
  Country: US (occurrence: US)
  Receive Date: 20141231
  Receipt Date: 20210412
  Transmission Date: 20210716
  Serious: Yes (Hospitalization, Other)
  Sender: FDA-Public Use
  Company Number: US-SA-2014SA088032

PATIENT
  Age: 77 Year
  Sex: Female
  Weight: 83.4 kg

DRUGS (2)
  1. TERIFLUNOMIDE. [Suspect]
     Active Substance: TERIFLUNOMIDE
     Dosage: 14 MG,QD
     Route: 048
     Dates: end: 20140815
  2. TERIFLUNOMIDE. [Suspect]
     Active Substance: TERIFLUNOMIDE
     Indication: MULTIPLE SCLEROSIS
     Dosage: 14 MG,QD
     Route: 048
     Dates: start: 20140613

REACTIONS (14)
  - Abdominal pain upper [Recovered/Resolved]
  - Frequent bowel movements [Recovered/Resolved]
  - Headache [Recovered/Resolved]
  - Appendicectomy [Unknown]
  - Anal incontinence [Not Recovered/Not Resolved]
  - Skin disorder [Not Recovered/Not Resolved]
  - Rash [Not Recovered/Not Resolved]
  - Nausea [Recovered/Resolved]
  - Diarrhoea [Unknown]
  - Vomiting [Recovered/Resolved]
  - Sepsis [Recovering/Resolving]
  - Gastrointestinal disorder [Recovering/Resolving]
  - Feeling abnormal [Recovered/Resolved]
  - Product dose omission issue [Unknown]

NARRATIVE: CASE EVENT DATE: 2014
